FAERS Safety Report 5235765-2 (Version None)
Quarter: 2007Q1

REPORT INFORMATION
  Report Type: 
  Country: None (occurrence: None)
  Receive Date: 20070212
  Receipt Date: 20070206
  Transmission Date: 20070707
  Serious: Yes (Death)
  Sender: FDA-Public Use
  Company Number: FR-AVENTIS-200710468FR

PATIENT
  Age: 84 Year
  Sex: Female
  Weight: 51 kg

DRUGS (7)
  1. LOVENOX [Suspect]
     Indication: EMBOLISM
     Route: 058
     Dates: start: 20070107, end: 20070109
  2. LOVENOX [Suspect]
     Indication: THROMBOSIS
     Route: 058
     Dates: start: 20070107, end: 20070109
  3. CALCIPARINE [Suspect]
     Indication: EMBOLISM
     Route: 058
     Dates: start: 20070110, end: 20070111
  4. FONZYLANE [Concomitant]
     Indication: THROMBOSIS
     Route: 042
  5. KARDEGIC                           /00002703/ [Concomitant]
     Route: 048
  6. PLAVIX [Concomitant]
     Route: 048
  7. ORGARAN                            /01353901/ [Concomitant]
     Indication: PELVIC VENOUS THROMBOSIS
     Route: 058
     Dates: start: 20070111

REACTIONS (6)
  - CARDIAC ARREST [None]
  - HEPARIN-INDUCED THROMBOCYTOPENIA [None]
  - METABOLIC ACIDOSIS [None]
  - PELVIC VENOUS THROMBOSIS [None]
  - RENAL IMPAIRMENT [None]
  - THROMBOCYTOPENIA [None]
